FAERS Safety Report 6300172-8 (Version None)
Quarter: 2009Q3

REPORT INFORMATION
  Report Type: 
  Country: None (occurrence: None)
  Receive Date: 20090806
  Receipt Date: 20090724
  Transmission Date: 20100115
  Serious: Yes (Hospitalization)
  Sender: FDA-Public Use
  Company Number: KR-GENENTECH-286704

PATIENT
  Sex: Male

DRUGS (5)
  1. RITUXIMAB [Suspect]
     Indication: DIFFUSE LARGE B-CELL LYMPHOMA
     Dosage: 680 MG, UNK
     Route: 042
     Dates: start: 20090618
  2. CYCLOPHOSPHAMIDE [Suspect]
     Indication: DIFFUSE LARGE B-CELL LYMPHOMA
     Dosage: 1300 MG, UNK
     Route: 065
     Dates: start: 20090619
  3. DOXORUBICIN HCL [Suspect]
     Indication: DIFFUSE LARGE B-CELL LYMPHOMA
     Dosage: 90 MG, UNK
     Route: 065
     Dates: start: 20090619
  4. VINCRISTINE [Suspect]
     Indication: DIFFUSE LARGE B-CELL LYMPHOMA
     Dosage: 2 MG, UNK
     Route: 065
     Dates: start: 20090619
  5. PREDNISOLONE [Suspect]
     Indication: DIFFUSE LARGE B-CELL LYMPHOMA
     Dosage: 100 MG, UNK
     Route: 065
     Dates: start: 20090619

REACTIONS (1)
  - ENTEROCOLITIS INFECTIOUS [None]
